FAERS Safety Report 17288391 (Version 1)
Quarter: 2020Q1

REPORT INFORMATION
  Report Type: Spontaneous
  Country: US (occurrence: US)
  Receive Date: 20191231
  Receipt Date: 20191231
  Transmission Date: 20200409
  Serious: No
  Sender: FDA-Public Use
  Company Number: None

PATIENT
  Age: 24 Year

DRUGS (1)
  1. TETRABENAZINE 25MG TAB [Suspect]
     Active Substance: TETRABENAZINE
     Indication: TOURETTE^S DISORDER
     Route: 048
     Dates: start: 20191207

REACTIONS (3)
  - Musculoskeletal stiffness [None]
  - Therapy cessation [None]
  - Product supply issue [None]

NARRATIVE: CASE EVENT DATE: 20191231
